FAERS Safety Report 19915859 (Version 1)
Quarter: 2021Q4

REPORT INFORMATION
  Report Type: Spontaneous
  Country: US (occurrence: US)
  Receive Date: 20211004
  Receipt Date: 20211004
  Transmission Date: 20220303
  Serious: Yes (Other)
  Sender: FDA-Public Use
  Company Number: None

PATIENT
  Age: 76 Year
  Sex: Male
  Weight: 99 kg

DRUGS (12)
  1. ERLEADA [Suspect]
     Active Substance: APALUTAMIDE
     Indication: Prostate cancer
     Route: 048
     Dates: start: 20210821
  2. ATORVASTATIN [Concomitant]
     Active Substance: ATORVASTATIN
  3. METFORMIN [Concomitant]
     Active Substance: METFORMIN HYDROCHLORIDE
  4. BICALUTAMIDE [Concomitant]
     Active Substance: BICALUTAMIDE
  5. SILDENAFIL [Concomitant]
     Active Substance: SILDENAFIL
  6. ASPIRIN [Concomitant]
     Active Substance: ASPIRIN
  7. VITAMIN D3 [Concomitant]
     Active Substance: CHOLECALCIFEROL
  8. IRON [Concomitant]
     Active Substance: IRON
  9. VITAMIN B12 [Concomitant]
     Active Substance: CYANOCOBALAMIN
  10. magox [Concomitant]
  11. FISH OIL [Concomitant]
     Active Substance: FISH OIL
  12. one daily for men [Concomitant]

REACTIONS (1)
  - Weight decreased [None]

NARRATIVE: CASE EVENT DATE: 20211004
